FAERS Safety Report 19181899 (Version 1)
Quarter: 2021Q2

REPORT INFORMATION
  Report Type: Report from Study
  Country: DE (occurrence: DE)
  Receive Date: 20210426
  Receipt Date: 20210426
  Transmission Date: 20210717
  Serious: Yes (Hospitalization, Other)
  Sender: FDA-Public Use
  Company Number: DE-TAKEDA-2014BAX067056

PATIENT
  Age: 44 Year
  Weight: 65 kg

DRUGS (19)
  1. NEVIRAPIN [Concomitant]
     Active Substance: NEVIRAPINE
     Dosage: 200 MILLIGRAM, QD
     Route: 048
     Dates: start: 201705
  2. ACETAZOLAMIDE. [Concomitant]
     Active Substance: ACETAZOLAMIDE
     Indication: GLAUCOMA
     Dosage: 250MILLIGRAM1X A DAY
     Route: 048
     Dates: start: 20120224
  3. FLORADIX EISEN [Concomitant]
     Indication: VERTIGO
     Dosage: 10MLAS NEEDED
     Route: 048
     Dates: start: 20131016
  4. ADVATE [Suspect]
     Active Substance: ANTIHEMOPHILIC FACTOR, HUMAN RECOMBINANT
     Indication: PROPHYLAXIS
     Dosage: 1000IU (INTERNATIONAL UNIT)EVERY 2 DY
     Route: 065
     Dates: start: 2008
  5. ADVATE [Suspect]
     Active Substance: ANTIHEMOPHILIC FACTOR, HUMAN RECOMBINANT
     Indication: FACTOR VIII DEFICIENCY
  6. TRUVADA [Concomitant]
     Active Substance: EMTRICITABINE\TENOFOVIR DISOPROXIL FUMARATE
     Indication: ANTIRETROVIRAL THERAPY
     Dosage: 300MG/200MG
     Route: 048
     Dates: start: 20120403, end: 201705
  7. COMBIVIR [Concomitant]
     Active Substance: LAMIVUDINE\ZIDOVUDINE
     Indication: ANTIRETROVIRAL THERAPY
     Dosage: 150MG/300MG
     Route: 048
     Dates: start: 20071027, end: 20120403
  8. DESCOVY [Concomitant]
     Active Substance: EMTRICITABINE\TENOFOVIR ALAFENAMIDE FUMARATE
     Indication: ANTIRETROVIRAL THERAPY
     Dosage: 200MG/25MG, QD
     Route: 048
     Dates: start: 201705
  9. SOVALDI [Concomitant]
     Active Substance: SOFOSBUVIR
     Indication: ANTIVIRAL TREATMENT
     Dosage: 400 MILLIGRAM, QD
     Route: 048
     Dates: start: 201605, end: 201609
  10. DAKLINZA [Concomitant]
     Active Substance: DACLATASVIR
     Indication: ANTIVIRAL TREATMENT
     Dosage: 60 MILLIGRAM, QD
     Route: 048
     Dates: start: 201605, end: 201609
  11. HYLO?VISION [Concomitant]
     Active Substance: HYALURONATE SODIUM
     Indication: GLAUCOMA
     Dosage: UNK
     Route: 031
  12. ADVATE [Suspect]
     Active Substance: ANTIHEMOPHILIC FACTOR, HUMAN RECOMBINANT
     Indication: PROPHYLAXIS
     Dosage: 1000IU (INTERNATIONAL UNIT)EVERY 2 DY
     Route: 065
     Dates: start: 2008
  13. ISENTRESS [Concomitant]
     Active Substance: RALTEGRAVIR POTASSIUM
     Indication: ANTIRETROVIRAL THERAPY
     Dosage: 400 MILLIGRAM, BID
     Route: 048
     Dates: start: 20160311, end: 201705
  14. ADVATE [Suspect]
     Active Substance: ANTIHEMOPHILIC FACTOR, HUMAN RECOMBINANT
     Indication: PROPHYLAXIS
     Dosage: 1000IU (INTERNATIONAL UNIT)EVERY 2 DY
     Route: 065
     Dates: start: 2008
  15. ADVATE [Suspect]
     Active Substance: ANTIHEMOPHILIC FACTOR, HUMAN RECOMBINANT
     Indication: FACTOR VIII DEFICIENCY
  16. ADVATE [Suspect]
     Active Substance: ANTIHEMOPHILIC FACTOR, HUMAN RECOMBINANT
     Indication: FACTOR VIII DEFICIENCY
  17. NEVIRAPIN [Concomitant]
     Active Substance: NEVIRAPINE
     Indication: ANTIRETROVIRAL THERAPY
     Dosage: 200MILLIGRAM2X A DAY
     Route: 048
     Dates: start: 20071027, end: 20160310
  18. CANDECOR [Concomitant]
     Active Substance: CANDESARTAN CILEXETIL
     Indication: HYPERTENSION
     Dosage: 1/2 TABLET
     Route: 048
     Dates: start: 20140401
  19. FEXOFENADINE [Concomitant]
     Active Substance: FEXOFENADINE HYDROCHLORIDE
     Indication: RHINITIS ALLERGIC
     Dosage: 1
     Route: 048

REACTIONS (2)
  - Iris neovascularisation [Unknown]
  - Glaucoma [Unknown]

NARRATIVE: CASE EVENT DATE: 20120101
